FAERS Safety Report 14566370 (Version 2)
Quarter: 2018Q1

REPORT INFORMATION
  Report Type: Spontaneous
  Country: PT (occurrence: PT)
  Receive Date: 20180223
  Receipt Date: 20180303
  Transmission Date: 20180509
  Serious: Yes (Other)
  Sender: FDA-Public Use
  Company Number: PT-AUROBINDO-AUR-APL-2017-43553

PATIENT
  Age: 27 Year
  Sex: Female
  Weight: 68 kg

DRUGS (5)
  1. ROPIVACAINE SOLUTION FOR INFUSION [Suspect]
     Active Substance: ROPIVACAINE
     Indication: ANALGESIC THERAPY
     Dosage: 15 MG, UNK
     Route: 040
  2. ROPIVACAINE SOLUTION FOR INFUSION [Suspect]
     Active Substance: ROPIVACAINE
     Indication: ANALGESIC THERAPY
     Dosage: 6 ML OF 0.2%
     Route: 065
  3. SODIUM CHLORIDE. [Concomitant]
     Active Substance: SODIUM CHLORIDE
     Indication: PRODUCT USED FOR UNKNOWN INDICATION
     Dosage: 40 MILLILITER
     Route: 065
  4. ROPIVACAINE SOLUTION FOR INFUSION [Suspect]
     Active Substance: ROPIVACAINE
     Indication: EPIDURAL ANALGESIA
     Dosage: 75 MG OF 0.75%
  5. SUFENTANIL [Concomitant]
     Active Substance: SUFENTANIL
     Indication: EPIDURAL ANALGESIA
     Dosage: 0.01 MG, IN 40ML SALINE SOLUTION AT 6ML/H
     Route: 042

REACTIONS (8)
  - Maternal exposure during delivery [Unknown]
  - Hypotension [Recovered/Resolved]
  - Ocular hyperaemia [Recovered/Resolved]
  - Miosis [Recovered/Resolved]
  - Eyelid ptosis [Unknown]
  - Horner^s syndrome [Unknown]
  - Palpitations [Recovered/Resolved]
  - Nasal congestion [Recovered/Resolved]
